FAERS Safety Report 4600645-X (Version None)
Quarter: 2005Q1

REPORT INFORMATION
  Report Type: 
  Country: None (occurrence: None)
  Receive Date: 20050304
  Receipt Date: 20050216
  Transmission Date: 20050727
  Serious: Yes (Hospitalization)
  Sender: FDA-Public Use
  Company Number: 2005037527

PATIENT
  Age: 59 Year
  Sex: Female
  Weight: 50 kg

DRUGS (4)
  1. SULFASALAZINE [Suspect]
     Indication: ARTHRITIS
     Dosage: 1500 MG (500 MG, 3 IN 1 D), ORAL
     Route: 048
     Dates: start: 20040801, end: 20050121
  2. IBUPROFEN [Concomitant]
  3. PEPPERMINT OIL (PEPPERMINT OIL) [Concomitant]
  4. ISPAGHULA (ISPAGHULA) [Concomitant]

REACTIONS (1)
  - HAEMOGLOBIN DECREASED [None]
